FAERS Safety Report 8221040-0 (Version None)
Quarter: 2012Q1

REPORT INFORMATION
  Report Type: 
  Country: None (occurrence: None)
  Receive Date: 20120320
  Receipt Date: 20120313
  Transmission Date: 20120608
  Serious: Yes (Hospitalization)
  Sender: FDA-Public Use
  Company Number: US-PFIZER INC-2012067192

PATIENT
  Sex: Female

DRUGS (1)
  1. SUTENT [Suspect]
     Indication: RENAL CANCER
     Dosage: 50 MG, UNK
     Dates: start: 20120116, end: 20120130

REACTIONS (5)
  - VOMITING [None]
  - DEHYDRATION [None]
  - DRUG INTOLERANCE [None]
  - NAUSEA [None]
  - DYSPHAGIA [None]
